FAERS Safety Report 7014335-X (Version None)
Quarter: 2010Q3

REPORT INFORMATION
  Report Type: 
  Country: None (occurrence: None)
  Receive Date: 20100924
  Receipt Date: 20100924
  Transmission Date: 20110219
  Serious: Yes (Other)
  Sender: FDA-Public Use
  Company Number: None

PATIENT
  Age: 69 Year
  Sex: Male
  Weight: 78.4723 kg

DRUGS (1)
  1. LEVAQUIN [Suspect]
     Indication: SINUSITIS
     Dosage: ONE TABLET DAILY PO
     Route: 048
     Dates: start: 20100724, end: 20100728

REACTIONS (2)
  - MOVEMENT DISORDER [None]
  - MUSCLE SPASMS [None]
